FAERS Safety Report 5420216-5 (Version None)
Quarter: 2007Q3

REPORT INFORMATION
  Report Type: 
  Country: None (occurrence: None)
  Receive Date: 20070820
  Receipt Date: 20070810
  Transmission Date: 20080115
  Serious: Yes (Other)
  Sender: FDA-Public Use
  Company Number: CA-PFIZER INC-2007067865

PATIENT
  Age: 56 Year
  Sex: Female

DRUGS (3)
  1. CHAMPIX [Suspect]
     Route: 048
     Dates: start: 20070809, end: 20070809
  2. ASPIRIN [Concomitant]
  3. ATACAND HCT [Concomitant]

REACTIONS (3)
  - ASTHENIA [None]
  - BRONCHOSPASM [None]
  - DYSPNOEA [None]
